FAERS Safety Report 11516867 (Version 1)
Quarter: 2015Q3

REPORT INFORMATION
  Report Type: Spontaneous
  Country: AU (occurrence: AU)
  Receive Date: 20150917
  Receipt Date: 20150917
  Transmission Date: 20151125
  Serious: Yes (Other)
  Sender: FDA-Public Use
  Company Number: AU-009507513-1509AUS007912

PATIENT
  Age: 71 Year
  Sex: Male

DRUGS (11)
  1. WARFARIN SODIUM. [Concomitant]
     Active Substance: WARFARIN SODIUM
  2. METFORMIN HYDROCHLORIDE. [Concomitant]
     Active Substance: METFORMIN HYDROCHLORIDE
  3. AMIODARONE HYDROCHLORIDE. [Concomitant]
     Active Substance: AMIODARONE HYDROCHLORIDE
  4. EZETIMIBE. [Concomitant]
     Active Substance: EZETIMIBE
  5. ACETAMINOPHEN. [Concomitant]
     Active Substance: ACETAMINOPHEN
  6. SITAGLIPTIN PHOSPHATE [Suspect]
     Active Substance: SITAGLIPTIN PHOSPHATE
     Dosage: 1.3 MG, UNK
     Dates: start: 20150324, end: 20150508
  7. BISOPROLOL FUMARATE. [Concomitant]
     Active Substance: BISOPROLOL FUMARATE
  8. FUROSEMIDE. [Concomitant]
     Active Substance: FUROSEMIDE
  9. BENEFIBER [Concomitant]
     Active Substance: STARCH, WHEAT
  10. PROPYLTHIOURACIL. [Concomitant]
     Active Substance: PROPYLTHIOURACIL
  11. GLICLAZIDE [Concomitant]
     Active Substance: GLICLAZIDE

REACTIONS (2)
  - Pruritus [Recovered/Resolved]
  - Skin injury [Recovered/Resolved]

NARRATIVE: CASE EVENT DATE: 20150508
